FAERS Safety Report 17037100 (Version 12)
Quarter: 2021Q2

REPORT INFORMATION
  Report Type: Spontaneous
  Country: US (occurrence: US)
  Receive Date: 20191115
  Receipt Date: 20210527
  Transmission Date: 20210716
  Serious: Yes (Other)
  Sender: FDA-Public Use
  Company Number: US-PFIZER INC-2019489771

PATIENT
  Age: 62 Year
  Sex: Female
  Weight: 117.91 kg

DRUGS (10)
  1. BABY ASPIRIN [Concomitant]
     Active Substance: ASPIRIN
     Dosage: UNK, 1X/DAY
  2. NARDIL [Suspect]
     Active Substance: PHENELZINE SULFATE
     Indication: DEPRESSION
     Dosage: 15 MG, 4X/DAY (4 HRS APART)
     Route: 048
     Dates: start: 1999
  3. HCTZ [Concomitant]
     Active Substance: HYDROCHLOROTHIAZIDE
     Dosage: 25 MG, 1X/DAY
  4. CELEBREX [Suspect]
     Active Substance: CELECOXIB
     Indication: KNEE ARTHROPLASTY
     Dosage: 1 DF, 1X/DAY
     Route: 048
     Dates: start: 2011
  5. CELEBREX [Suspect]
     Active Substance: CELECOXIB
     Indication: ARTHRALGIA
     Dosage: 15 MG, 5X DAY
     Dates: start: 2011
  6. CELEBREX [Suspect]
     Active Substance: CELECOXIB
     Dosage: 200 MG, 1X/DAY
     Route: 048
  7. CLONAZEPAM. [Concomitant]
     Active Substance: CLONAZEPAM
     Dosage: 2 MG, 4X/DAY
  8. NARDIL [Suspect]
     Active Substance: PHENELZINE SULFATE
     Dosage: 15 MG, 4X/DAY
     Route: 048
  9. HCTZ [Concomitant]
     Active Substance: HYDROCHLOROTHIAZIDE
     Dosage: 2 DF, DAILY
     Dates: start: 2011
  10. LAMOTRIGINE. [Concomitant]
     Active Substance: LAMOTRIGINE
     Dosage: 200 MG, 4X/DAY

REACTIONS (15)
  - Feeling abnormal [Unknown]
  - Panic reaction [Recovered/Resolved]
  - Irritability [Unknown]
  - Intentional product use issue [Unknown]
  - Product use issue [Unknown]
  - Memory impairment [Unknown]
  - Panic attack [Unknown]
  - Crying [Unknown]
  - Visual impairment [Unknown]
  - Anxiety [Unknown]
  - Mental impairment [Unknown]
  - Off label use [Unknown]
  - Confusional state [Unknown]
  - Emotional disorder [Unknown]
  - Malaise [Unknown]

NARRATIVE: CASE EVENT DATE: 2011
